FAERS Safety Report 10207555 (Version 1)
Quarter: 2014Q2

REPORT INFORMATION
  Report Type: Spontaneous
  Country: US (occurrence: US)
  Receive Date: 20140530
  Receipt Date: 20140530
  Transmission Date: 20141212
  Serious: No
  Sender: FDA-Public Use
  Company Number: US-GLAXOSMITHKLINE-A1049467A

PATIENT
  Age: 64 Year
  Sex: Female

DRUGS (3)
  1. VENTOLIN [Suspect]
     Indication: CHRONIC OBSTRUCTIVE PULMONARY DISEASE
     Dosage: 2PUFF AS REQUIRED
     Route: 055
  2. ADVAIR [Concomitant]
  3. SYMBICORT [Concomitant]

REACTIONS (3)
  - Hypersensitivity [Recovering/Resolving]
  - Malaise [Unknown]
  - Dyspnoea [Unknown]
